FAERS Safety Report 9216078 (Version 2)
Quarter: 2013Q2

REPORT INFORMATION
  Report Type: Spontaneous
  Country: DE (occurrence: None)
  Receive Date: 20130404
  Receipt Date: 20130422
  Transmission Date: 20140414
  Serious: Yes (Other)
  Sender: FDA-Public Use
  Company Number: SYM-2013-02166

PATIENT
  Age: 35 Year
  Sex: Male

DRUGS (2)
  1. ELONTRIL [Suspect]
     Indication: SUICIDE ATTEMPT
     Route: 048
     Dates: start: 20130323
  2. SEDATIVE (OTHER HYPNOTICS AND SEDATIVES) [Concomitant]

REACTIONS (7)
  - Intentional overdose [None]
  - Suicide attempt [None]
  - Intentional overdose [None]
  - Convulsion [None]
  - Vomiting [None]
  - Tachycardia [None]
  - Refusal of treatment by patient [None]
